FAERS Safety Report 20993790 (Version 3)
Quarter: 2022Q2

REPORT INFORMATION
  Report Type: Spontaneous
  Country: CN (occurrence: None)
  Receive Date: 20220622
  Receipt Date: 20220630
  Transmission Date: 20220721
  Serious: Yes (Hospitalization, Other)
  Sender: FDA-Public Use
  Company Number: 2022A224974

PATIENT
  Age: 70 Year
  Sex: Female

DRUGS (2)
  1. IRESSA [Suspect]
     Active Substance: GEFITINIB
     Indication: Neoplasm
     Dosage: 1 TABLET EVERY TIME, ONCE DAILY, LATER, DAILY DOSE WAS INCREASED TO ONCE DAILY, ONE AND A HALF TA...
     Route: 048
     Dates: start: 2017, end: 2019
  2. OSIMERTINIB [Suspect]
     Active Substance: OSIMERTINIB
     Route: 065
     Dates: start: 201909

REACTIONS (11)
  - Toxicity to various agents [Unknown]
  - Drug resistance [Unknown]
  - Bone pain [Recovered/Resolved]
  - Neoplasm progression [Unknown]
  - Skin discolouration [Unknown]
  - Hepatomegaly [Unknown]
  - Hepatic pain [Unknown]
  - Product counterfeit [Unknown]
  - Drug ineffective [Unknown]
  - Intentional product misuse [Unknown]
  - Product use issue [Unknown]

NARRATIVE: CASE EVENT DATE: 20190101
